FAERS Safety Report 8224934-5 (Version None)
Quarter: 2012Q1

REPORT INFORMATION
  Report Type: 
  Country: None (occurrence: None)
  Receive Date: 20120321
  Receipt Date: 20120313
  Transmission Date: 20120608
  Serious: Yes (Other)
  Sender: FDA-Public Use
  Company Number: FR-PFIZER INC-2012067177

PATIENT
  Age: 34 Year
  Sex: Female

DRUGS (5)
  1. IFOSFAMIDE [Suspect]
     Indication: SARCOMA
     Dosage: 5 G/M2 (1 CYCLE)
     Route: 041
  2. ONDANSETRON [Concomitant]
  3. MESNA [Concomitant]
  4. DOXORUBICIN HCL [Suspect]
     Indication: SARCOMA
     Dosage: 50 MG/M2, BOLUS, DAY 1
     Route: 040
  5. METOCLOPRAMIDE [Concomitant]

REACTIONS (4)
  - HYPOALBUMINAEMIA [None]
  - LYMPHOPENIA [None]
  - OLIGOHYDRAMNIOS [None]
  - ALOPECIA [None]
